FAERS Safety Report 14771971 (Version 2)
Quarter: 2018Q2

REPORT INFORMATION
  Report Type: Report from Study
  Country: IT (occurrence: IT)
  Receive Date: 20180417
  Receipt Date: 20180504
  Transmission Date: 20180711
  Serious: Yes (Other)
  Sender: FDA-Public Use
  Company Number: IT-VIFOR (INTERNATIONAL) INC.-VIT-2018-03640

PATIENT
  Sex: Male
  Weight: 71.5 kg

DRUGS (6)
  1. VELPHORO [Suspect]
     Active Substance: FERRIC OXYHYDROXIDE
     Indication: HYPERPHOSPHATAEMIA
     Route: 048
     Dates: start: 20171117, end: 20180313
  2. FERLIXIT [Concomitant]
     Active Substance: SODIUM FERRIC GLUCONATE COMPLEX
     Indication: IRON DEFICIENCY ANAEMIA
     Dates: start: 20120505, end: 20171009
  3. CLEXANE [Concomitant]
     Active Substance: ENOXAPARIN SODIUM
     Indication: THROMBOSIS PROPHYLAXIS
     Dates: start: 20120605
  4. RETACRIT [Concomitant]
     Active Substance: EPOETIN ALFA-EPBX
     Indication: ANAEMIA
     Dates: start: 20170519
  5. CALCIJEX [Concomitant]
     Active Substance: CALCITRIOL
     Indication: HYPERPARATHYROIDISM
     Dates: start: 20120605
  6. TIROIDEIBSA [Concomitant]
     Indication: THYROID DISORDER
     Dates: start: 20170519

REACTIONS (3)
  - Hypophosphataemia [Recovered/Resolved]
  - Cachexia [Unknown]
  - Dementia [Unknown]

NARRATIVE: CASE EVENT DATE: 20180313
